FAERS Safety Report 18994745 (Version 1)
Quarter: 2021Q1

REPORT INFORMATION
  Report Type: Spontaneous
  Country: US (occurrence: US)
  Receive Date: 20210311
  Receipt Date: 20210311
  Transmission Date: 20210420
  Serious: No
  Sender: FDA-Public Use
  Company Number: US-SA-2021SA079474

PATIENT
  Age: 6 Year
  Sex: Male

DRUGS (1)
  1. DUPIXENT [Suspect]
     Active Substance: DUPILUMAB
     Indication: DERMATITIS ATOPIC
     Route: 058
     Dates: start: 202007

REACTIONS (4)
  - Pruritus [Not Recovered/Not Resolved]
  - Product use issue [Unknown]
  - Dermatitis atopic [Unknown]
  - Insomnia [Unknown]

NARRATIVE: CASE EVENT DATE: 202007
